FAERS Safety Report 19280600 (Version 3)
Quarter: 2021Q3

REPORT INFORMATION
  Report Type: Report from Study
  Country: US (occurrence: US)
  Receive Date: 20210521
  Receipt Date: 20210728
  Transmission Date: 20211014
  Serious: Yes (Hospitalization)
  Sender: FDA-Public Use
  Company Number: US-AMGEN-USACT2021075703

PATIENT
  Age: 64 Year
  Sex: Male
  Weight: 71.09 kg

DRUGS (15)
  1. MOVE FREE [CALCIUM FRUCTOBORATE;HYALURONIC ACID] [Concomitant]
     Dosage: 2 UNK
     Dates: start: 20200728
  2. IBUPROFEN. [Concomitant]
     Active Substance: IBUPROFEN
     Dosage: 800 MILLIGRAM
     Dates: start: 20200728
  3. VENTOLIN [Concomitant]
     Active Substance: ALBUTEROL SULFATE
     Dosage: 50 MICROGRAM
     Dates: start: 2012
  4. ATORVASTATIN [Concomitant]
     Active Substance: ATORVASTATIN
     Indication: DYSLIPIDAEMIA
     Dosage: 40 MILLIGRAM
     Dates: start: 20140909
  5. ATENOLOL. [Concomitant]
     Active Substance: ATENOLOL
     Dosage: 100 MILLIGRAM
     Dates: start: 2012
  6. LISINOPRIL. [Concomitant]
     Active Substance: LISINOPRIL
     Dosage: 40 MILLIGRAM
     Dates: start: 2013
  7. METHADONE [Concomitant]
     Active Substance: METHADONE HYDROCHLORIDE
     Dosage: 40 MILLIGRAM
     Dates: start: 2009
  8. FLOVENT [Concomitant]
     Active Substance: FLUTICASONE PROPIONATE
     Dosage: 220 MICROGRAM
     Dates: start: 2012
  9. EVOLOCUMAB [Suspect]
     Active Substance: EVOLOCUMAB
     Indication: DYSLIPIDAEMIA
     Dosage: 1 MILLILITER
     Route: 058
     Dates: start: 20160912
  10. TAMSULOSIN [Concomitant]
     Active Substance: TAMSULOSIN
     Dosage: 0.4 MILLIGRAM
     Dates: start: 2012
  11. WARFARIN [Concomitant]
     Active Substance: WARFARIN
     Dosage: 7.5 MILLIGRAM
     Dates: start: 201404
  12. TRAZODONE [Concomitant]
     Active Substance: TRAZODONE HYDROCHLORIDE
     Dosage: 100 MILLIGRAM
     Dates: start: 2014
  13. CYCLOBENZAPRINE. [Concomitant]
     Active Substance: CYCLOBENZAPRINE
     Dosage: 5 MILLIGRAM
     Dates: start: 20200728
  14. RANITIDINE. [Concomitant]
     Active Substance: RANITIDINE
     Dosage: 150 MILLIGRAM
     Dates: start: 20170518
  15. FLEXERIL [CEFIXIME] [Concomitant]
     Active Substance: CEFIXIME
     Dosage: 10 MILLIGRAM
     Dates: start: 20200614

REACTIONS (1)
  - Cardiac disorder [Unknown]

NARRATIVE: CASE EVENT DATE: 20201030
